FAERS Safety Report 6097991-2 (Version None)
Quarter: 2009Q1

REPORT INFORMATION
  Report Type: 
  Country: None (occurrence: None)
  Receive Date: 20090227
  Receipt Date: 20090219
  Transmission Date: 20090719
  Serious: Yes (Hospitalization)
  Sender: FDA-Public Use
  Company Number: HR-ABBOTT-09P-216-0558249-00

PATIENT
  Age: 52 Year
  Sex: Male
  Weight: 56 kg

DRUGS (14)
  1. ZEMPLAR [Suspect]
     Indication: HYPERPARATHYROIDISM
     Dates: start: 20080131
  2. GOPTEN [Suspect]
     Indication: MYOCARDIAL INFARCTION
     Route: 048
     Dates: start: 20080816
  3. SEVELAMER HYDROCHLORIDE [Concomitant]
     Indication: HYPERPHOSPHATAEMIA
     Route: 048
     Dates: start: 20070320, end: 20080624
  4. SEVELAMER HYDROCHLORIDE [Concomitant]
     Route: 048
     Dates: start: 20080624
  5. BISOPROLOL [Concomitant]
     Indication: MYOCARDIAL INFARCTION
     Route: 048
     Dates: start: 20080816, end: 20081217
  6. BISOPROLOL [Concomitant]
     Route: 048
     Dates: start: 20081218
  7. NIFEDIPINE [Concomitant]
     Indication: HYPERTENSION
     Route: 048
     Dates: start: 20070320, end: 20080815
  8. NIFEDIPINE [Concomitant]
     Dosage: 3 X 20 MILLIGRAMS
     Route: 048
     Dates: start: 20080816, end: 20081217
  9. NIFEDIPINE [Concomitant]
     Dosage: 2 X 20 MG
     Route: 048
     Dates: start: 20081218
  10. TRANDOLAPRIL [Concomitant]
     Indication: MYOCARDIAL INFARCTION
     Dates: start: 20080816
  11. ACETYLSALICYLIC ACID SRT [Concomitant]
     Indication: MYOCARDIAL INFARCTION
     Route: 048
     Dates: start: 20080816, end: 20081217
  12. WARFARIN [Concomitant]
     Indication: PERIPHERAL EMBOLISM
     Route: 048
     Dates: start: 20081218
  13. RANITIDINE [Concomitant]
     Indication: GASTRITIS
     Route: 048
     Dates: start: 20060323
  14. ATORVASTATIN [Concomitant]
     Indication: HYPERLIPIDAEMIA
     Dates: start: 20070818

REACTIONS (2)
  - PAIN IN EXTREMITY [None]
  - PERIPHERAL EMBOLISM [None]
